FAERS Safety Report 11313794 (Version 1)
Quarter: 2015Q3

REPORT INFORMATION
  Report Type: Spontaneous
  Country: US (occurrence: US)
  Receive Date: 20150727
  Receipt Date: 20150727
  Transmission Date: 20151125
  Serious: No
  Sender: FDA-Public Use
  Company Number: US-ABBVIE-14P-163-1320338-00

PATIENT
  Age: 69 Year
  Sex: Female

DRUGS (2)
  1. LEVOTHYROXINE. [Suspect]
     Active Substance: LEVOTHYROXINE
     Indication: PRODUCT USED FOR UNKNOWN INDICATION
     Route: 065
  2. LEVOTHYROXINE SODIUM. [Suspect]
     Active Substance: LEVOTHYROXINE SODIUM
     Indication: THYROIDECTOMY
     Route: 065
     Dates: start: 2013

REACTIONS (8)
  - Myalgia [Unknown]
  - Food craving [Unknown]
  - Fatigue [Recovering/Resolving]
  - Tracheal obstruction [Unknown]
  - Oesophageal spasm [Unknown]
  - Cough [Unknown]
  - Drug ineffective [Unknown]
  - Choking [Unknown]
